FAERS Safety Report 9566041 (Version 1)
Quarter: 2013Q3

REPORT INFORMATION
  Report Type: Spontaneous
  Country: US (occurrence: US)
  Receive Date: 20130930
  Receipt Date: 20130930
  Transmission Date: 20140515
  Serious: Yes (Death, Hospitalization)
  Sender: FDA-Public Use
  Company Number: US-PFIZER INC-2013278313

PATIENT
  Age: 18 Year
  Sex: Male
  Weight: 81.63 kg

DRUGS (9)
  1. DILANTIN [Suspect]
     Indication: EPILEPSY
     Dosage: 260 MG, 2X/DAY
     Dates: start: 20100710
  2. ONFI [Suspect]
     Indication: LENNOX-GASTAUT SYNDROME
     Dosage: 10 MG, 1X/DAY
     Route: 048
     Dates: start: 20120125
  3. MIRALAX [Concomitant]
     Indication: CONSTIPATION
     Dosage: UNK, PRN
  4. GUAIFENESIN [Concomitant]
     Indication: NASOPHARYNGITIS
     Dosage: UNK, PRN
  5. VITAMIN B6 [Concomitant]
     Dosage: UNK
  6. TYLENOL [Concomitant]
     Dosage: UNK
  7. DIAZEPAM [Concomitant]
     Indication: CONVULSION
     Dosage: UNK
  8. CROMOLYN SODIUM [Concomitant]
     Dosage: 1 GTT, 4X/DAY (EACH EYE)
     Route: 047
     Dates: start: 20130717
  9. DEXAMETHASONE/TOBRAMYCIN SULFATE [Concomitant]
     Dosage: 1 GTT, 4X/DAY (EACH EYE)
     Dates: start: 20130717, end: 20130731

REACTIONS (3)
  - Death [Fatal]
  - Convulsion [Unknown]
  - Anticonvulsant drug level increased [Unknown]
